FAERS Safety Report 4453905-X (Version None)
Quarter: 2004Q3

REPORT INFORMATION
  Report Type: 
  Country: None (occurrence: None)
  Receive Date: 20040826
  Receipt Date: 20040429
  Transmission Date: 20050211
  Serious: No
  Sender: FDA-Public Use
  Company Number: WAES 0404USA02551

PATIENT

DRUGS (11)
  1. ZETIA [Suspect]
     Dosage: PO
     Route: 048
  2. ADVAIR DISKUS 100/50 [Concomitant]
  3. ASTELIN [Concomitant]
  4. CLARITIN-D [Concomitant]
  5. PROTONIX [Concomitant]
  6. RHINOCORT [Concomitant]
  7. SINGULAIR [Concomitant]
  8. ALBUTEROL [Concomitant]
  9. ALLOPURINOL [Concomitant]
  10. ATENOLOL [Concomitant]
  11. PREDNISONE [Concomitant]

REACTIONS (1)
  - OEDEMA PERIPHERAL [None]
